FAERS Safety Report 6743856-X (Version None)
Quarter: 2010Q2

REPORT INFORMATION
  Report Type: 
  Country: None (occurrence: None)
  Receive Date: 20100527
  Receipt Date: 20100211
  Transmission Date: 20101027
  Serious: No
  Sender: FDA-Public Use
  Company Number: US-KINGPHARMUSA00001-K201000167

PATIENT
  Sex: Female
  Weight: 58.957 kg

DRUGS (5)
  1. FLECTOR [Suspect]
     Indication: PAIN IN EXTREMITY
     Dosage: 1 PATCH, BID PRN
     Route: 061
     Dates: start: 20100101, end: 20100201
  2. SYNTHROID [Concomitant]
  3. LIPITOR [Concomitant]
  4. NEXIUM [Concomitant]
  5. PLAVIX [Concomitant]

REACTIONS (3)
  - APPLICATION SITE DISCOLOURATION [None]
  - ERYTHEMA [None]
  - PAIN [None]
